FAERS Safety Report 6863367-0 (Version None)
Quarter: 2010Q3

REPORT INFORMATION
  Report Type: 
  Country: None (occurrence: None)
  Receive Date: 20100721
  Receipt Date: 20100712
  Transmission Date: 20110219
  Serious: Yes (Other)
  Sender: FDA-Public Use
  Company Number: CN-JNJFOC-20100703622

PATIENT
  Age: 35 Year
  Sex: Female

DRUGS (2)
  1. NIZORAL [Suspect]
     Indication: ONYCHOMYCOSIS
     Route: 048
  2. NIZORAL [Suspect]
     Route: 048

REACTIONS (2)
  - GENERALISED OEDEMA [None]
  - INTENTIONAL DRUG MISUSE [None]
